FAERS Safety Report 9466553 (Version 2)
Quarter: 2013Q3

REPORT INFORMATION
  Report Type: Report from Study
  Country: US (occurrence: US)
  Receive Date: 20130820
  Receipt Date: 20130820
  Transmission Date: 20140515
  Serious: Yes (Hospitalization)
  Sender: FDA-Public Use
  Company Number: US-ACTELION-A-NJ2012-76106

PATIENT
  Age: 81 Year
  Sex: Male

DRUGS (4)
  1. TRACLEER [Suspect]
     Indication: PULMONARY ARTERIAL HYPERTENSION
     Dosage: UNK
     Route: 048
  2. SILDENAFIL [Concomitant]
  3. ADCIRCA [Concomitant]
  4. TYVASO [Concomitant]

REACTIONS (2)
  - Pulmonary oedema [Unknown]
  - Pulmonary hypertension [Recovering/Resolving]
